FAERS Safety Report 16078033 (Version 1)
Quarter: 2019Q1

REPORT INFORMATION
  Report Type: Spontaneous
  Country: RU (occurrence: RU)
  Receive Date: 20190315
  Receipt Date: 20190315
  Transmission Date: 20190418
  Serious: Yes (Life-Threatening, Other)
  Sender: FDA-Public Use
  Company Number: IND-RU-009507513-1903RUS003261

PATIENT
  Age: 67 Year
  Sex: Female
  Weight: 90 kg

DRUGS (3)
  1. DEXAMETHASONE. [Suspect]
     Active Substance: DEXAMETHASONE
     Indication: INDUCTION OF ANAESTHESIA
     Dosage: 250 MG SINGLE DOSE/UNKNOWN MG/50 MG AT 15:52 AND 20 MG AT 16:20 (SUM 70 MG)
     Route: 042
     Dates: start: 20190103, end: 20190103
  2. ESMERON [Suspect]
     Active Substance: ROCURONIUM BROMIDE
     Indication: INDUCTION OF ANAESTHESIA
     Dosage: 250 MG SINGLE DOSE/UNKNOWN MG/50 MG AT 15:52 AND 20 MG AT 16:20 (SUM 70 MG)
     Route: 042
     Dates: start: 20190103, end: 20190103
  3. DIPRIVAN [Suspect]
     Active Substance: PROPOFOL
     Indication: INDUCTION OF ANAESTHESIA
     Dosage: 250 MG SINGLE DOSE/UNKNOWN MG/50 MG AT 15:52 AND 20 MG AT 16:20 (SUM 70 MG)
     Route: 042
     Dates: start: 20190103, end: 20190103

REACTIONS (2)
  - Anaphylactic shock [Recovered/Resolved]
  - Oxygen saturation decreased [Recovered/Resolved]

NARRATIVE: CASE EVENT DATE: 20190103
